FAERS Safety Report 12939426 (Version 1)
Quarter: 2016Q4

REPORT INFORMATION
  Report Type: Spontaneous
  Country: SE (occurrence: SE)
  Receive Date: 20161115
  Receipt Date: 20161115
  Transmission Date: 20170207
  Serious: Yes (Other)
  Sender: FDA-Public Use
  Company Number: SE-009507513-1611SWE004528

PATIENT
  Sex: Male

DRUGS (1)
  1. PERPHENAZINE. [Suspect]
     Active Substance: PERPHENAZINE
     Indication: SCHIZOAFFECTIVE DISORDER
     Dosage: UNK
     Route: 048

REACTIONS (11)
  - Mania [Unknown]
  - Dizziness [Unknown]
  - Dyspnoea [Unknown]
  - Depression [Unknown]
  - Somnolence [Unknown]
  - Tachycardia [Unknown]
  - Hallucination [Unknown]
  - Weight increased [Unknown]
  - Akathisia [Unknown]
  - Arrhythmia [Unknown]
  - Disturbance in attention [Unknown]
